FAERS Safety Report 6596072-9 (Version None)
Quarter: 2010Q1

REPORT INFORMATION
  Report Type: 
  Country: None (occurrence: None)
  Receive Date: 20100216
  Receipt Date: 20100208
  Transmission Date: 20100710
  Serious: Yes (Hospitalization)
  Sender: FDA-Public Use
  Company Number: 2009AC000288

PATIENT
  Age: 73 Year
  Sex: Female

DRUGS (41)
  1. DIGOXIN [Suspect]
     Dosage: .125 MG;QD;PO
     Route: 048
     Dates: start: 20050101
  2. DIGOXIN [Suspect]
     Indication: ATRIAL TACHYCARDIA
     Dosage: .250 MG;QD;PO
     Route: 048
     Dates: start: 19850101
  3. DIGOXIN [Suspect]
     Indication: TACHYCARDIA
     Dosage: .250 MG;QD;PO
     Route: 048
     Dates: start: 19850101
  4. LISINOPRIL [Concomitant]
  5. ASCRIPTIN [Concomitant]
  6. VITAMIN B-12 [Concomitant]
  7. LIPITOR [Concomitant]
  8. POTASSIUM CHLORIDE [Concomitant]
  9. ZETIA [Concomitant]
  10. OCEAN NASAL SPRAY [Concomitant]
  11. LEVAQUIN [Concomitant]
  12. METHYLPREDNISOLONE [Concomitant]
  13. PROMETHAZINE [Concomitant]
  14. FLUOROURACIL [Concomitant]
  15. TRIAMCINOLONE [Concomitant]
  16. CEPHALEXIN [Concomitant]
  17. ENTEX SOLUTION [Concomitant]
  18. DOXYCYLINE [Concomitant]
  19. SELDANE-D [Concomitant]
  20. VACENASE [Concomitant]
  21. TRIMOX [Concomitant]
  22. VANCERIL [Concomitant]
  23. ZITHROMAX [Concomitant]
  24. DELTASONE [Concomitant]
  25. CLARITIN [Concomitant]
  26. LESCOL [Concomitant]
  27. QUESTRAN [Concomitant]
  28. DICYCLOMINE [Concomitant]
  29. ZOCOR [Concomitant]
  30. DEPHENOXYLATE/ATROPINE [Concomitant]
  31. PRAVACHOL [Concomitant]
  32. TAMIFLU [Concomitant]
  33. AVELOX [Concomitant]
  34. AMOXICILLIN [Concomitant]
  35. TEQUIN [Concomitant]
  36. CIPRO [Concomitant]
  37. COUMADIN [Concomitant]
  38. POTASSIUM [Concomitant]
  39. K-DUR [Concomitant]
  40. DARVOCET [Concomitant]
  41. ASPIRIN [Concomitant]

REACTIONS (25)
  - ABDOMINAL PAIN [None]
  - ABDOMINAL PAIN UPPER [None]
  - ANXIETY [None]
  - ARTERIOSCLEROSIS [None]
  - ATRIAL SEPTAL DEFECT [None]
  - BLOOD ALKALINE PHOSPHATASE INCREASED [None]
  - BLOOD POTASSIUM DECREASED [None]
  - CEREBROVASCULAR ACCIDENT [None]
  - CORONARY ARTERY DISEASE [None]
  - DIABETES MELLITUS [None]
  - DIZZINESS [None]
  - ECONOMIC PROBLEM [None]
  - EMOTIONAL DISORDER [None]
  - FATIGUE [None]
  - GAIT DISTURBANCE [None]
  - HYPERLIPIDAEMIA [None]
  - HYPERTENSION [None]
  - INFLUENZA LIKE ILLNESS [None]
  - JOINT DISLOCATION [None]
  - MULTIPLE INJURIES [None]
  - NAUSEA [None]
  - PARAESTHESIA [None]
  - PRESYNCOPE [None]
  - SUPRAVENTRICULAR TACHYCARDIA [None]
  - SURGERY [None]
